FAERS Safety Report 4374939-X (Version None)
Quarter: 2004Q2

REPORT INFORMATION
  Report Type: 
  Country: None (occurrence: None)
  Receive Date: 20040603
  Receipt Date: 20031120
  Transmission Date: 20050107
  Serious: Yes (Death)
  Sender: FDA-Public Use
  Company Number: 200320041US

PATIENT
  Sex: Female

DRUGS (6)
  1. LOVENOX [Suspect]
     Indication: DEEP VEIN THROMBOSIS
     Dosage: BID
  2. LOVENOX [Suspect]
     Indication: PULMONARY EMBOLISM
     Dosage: BID
  3. LOVENOX [Suspect]
     Indication: DEEP VEIN THROMBOSIS
     Dosage: 0.8 MG/KG
  4. LOVENOX [Suspect]
     Indication: PULMONARY EMBOLISM
     Dosage: 0.8 MG/KG
  5. ANTIBIOTICS NOS [Concomitant]
  6. STEROIDS NOS [Concomitant]

REACTIONS (1)
  - RETROPERITONEAL HAEMORRHAGE [None]
